FAERS Safety Report 8236176 (Version 8)
Quarter: 2012Q4

REPORT INFORMATION
  Report Type: 
  Country: US (occurrence: US)
  Receive Date: 20111108
  Receipt Date: 20121130
  Transmission Date: 20130627
  Serious: Yes (Life-Threatening, Hospitalization, Other)
  Sender: FDA-Public Use
  Company Number: US-ASTRAZENECA-2011SE65397

PATIENT
  Age: 60 Year
  Sex: Female
  Weight: 69.4 kg

DRUGS (49)
  1. NEXIUM [Suspect]
     Indication: GASTROOESOPHAGEAL REFLUX PROPHYLAXIS
     Route: 048
     Dates: start: 2001, end: 2005
  2. NEXIUM [Suspect]
     Indication: GASTROOESOPHAGEAL REFLUX DISEASE
     Route: 048
     Dates: start: 2001, end: 2005
  3. NEXIUM [Suspect]
     Indication: DYSPEPSIA
     Route: 048
     Dates: start: 2001, end: 2005
  4. NEXIUM [Suspect]
     Indication: ABDOMINAL PAIN UPPER
     Route: 048
     Dates: start: 2001, end: 2005
  5. NEXIUM [Suspect]
     Indication: PROPHYLAXIS AGAINST GASTROINTESTINAL ULCER
     Route: 048
     Dates: start: 2001, end: 2005
  6. NEXIUM [Suspect]
     Indication: GASTROOESOPHAGEAL REFLUX PROPHYLAXIS
     Route: 048
     Dates: start: 2005, end: 2011
  7. NEXIUM [Suspect]
     Indication: GASTROOESOPHAGEAL REFLUX DISEASE
     Route: 048
     Dates: start: 2005, end: 2011
  8. NEXIUM [Suspect]
     Indication: DYSPEPSIA
     Route: 048
     Dates: start: 2005, end: 2011
  9. NEXIUM [Suspect]
     Indication: ABDOMINAL PAIN UPPER
     Route: 048
     Dates: start: 2005, end: 2011
  10. NEXIUM [Suspect]
     Indication: PROPHYLAXIS AGAINST GASTROINTESTINAL ULCER
     Route: 048
     Dates: start: 2005, end: 2011
  11. NEXIUM [Suspect]
     Indication: GASTROOESOPHAGEAL REFLUX PROPHYLAXIS
     Route: 048
     Dates: start: 2011, end: 201202
  12. NEXIUM [Suspect]
     Indication: GASTROOESOPHAGEAL REFLUX DISEASE
     Route: 048
     Dates: start: 2011, end: 201202
  13. NEXIUM [Suspect]
     Indication: DYSPEPSIA
     Route: 048
     Dates: start: 2011, end: 201202
  14. NEXIUM [Suspect]
     Indication: ABDOMINAL PAIN UPPER
     Route: 048
     Dates: start: 2011, end: 201202
  15. NEXIUM [Suspect]
     Indication: PROPHYLAXIS AGAINST GASTROINTESTINAL ULCER
     Route: 048
     Dates: start: 2011, end: 201202
  16. NEXIUM [Suspect]
     Indication: GASTROOESOPHAGEAL REFLUX PROPHYLAXIS
     Route: 048
  17. NEXIUM [Suspect]
     Indication: GASTROOESOPHAGEAL REFLUX DISEASE
     Route: 048
  18. NEXIUM [Suspect]
     Indication: DYSPEPSIA
     Route: 048
  19. NEXIUM [Suspect]
     Indication: ABDOMINAL PAIN UPPER
     Route: 048
  20. NEXIUM [Suspect]
     Indication: PROPHYLAXIS AGAINST GASTROINTESTINAL ULCER
     Route: 048
  21. PRILOSEC [Suspect]
     Indication: PROPHYLAXIS AGAINST GASTROINTESTINAL ULCER
     Dosage: GENERIC
     Route: 048
  22. PRILOSEC [Suspect]
     Indication: PROPHYLAXIS AGAINST GASTROINTESTINAL ULCER
     Route: 048
  23. PRILOSEC OTC [Suspect]
     Indication: GASTROOESOPHAGEAL REFLUX DISEASE
     Dosage: DAILY
     Route: 048
  24. MYLANTA [Suspect]
     Route: 065
  25. MUSCLE RELAXERS [Suspect]
     Route: 065
  26. ZANTAC [Concomitant]
  27. STEROID [Concomitant]
  28. PEPTIDASE [Concomitant]
  29. IBUPROFEN [Concomitant]
  30. OTHER PAIN MEDICATION [Concomitant]
  31. FENTANYL [Concomitant]
     Indication: PAIN
     Route: 061
  32. OXYCODONE [Concomitant]
     Indication: BREAKTHROUGH PAIN
     Route: 048
  33. VALIUM [Concomitant]
     Indication: ANXIETY DISORDER
     Route: 048
  34. COMBIVENT [Concomitant]
     Indication: ASTHMA
     Route: 055
  35. COMBIVENT [Concomitant]
     Indication: CHRONIC OBSTRUCTIVE PULMONARY DISEASE
     Route: 055
  36. FLOVENT [Concomitant]
     Indication: ASTHMA
     Route: 055
  37. FLOVENT [Concomitant]
     Indication: CHRONIC OBSTRUCTIVE PULMONARY DISEASE
     Route: 055
  38. SPIRIVA [Concomitant]
     Indication: ASTHMA
     Route: 055
  39. SPIRIVA [Concomitant]
     Indication: CHRONIC OBSTRUCTIVE PULMONARY DISEASE
     Route: 055
  40. SINGULAIR [Concomitant]
     Indication: ASTHMA
     Route: 048
  41. SINGULAIR [Concomitant]
     Indication: CHRONIC OBSTRUCTIVE PULMONARY DISEASE
     Route: 048
  42. CATAPRES [Concomitant]
     Indication: HYPERTENSION
     Dosage: FREQUENCY: WEEK
     Route: 061
  43. EFFEXOR [Concomitant]
     Indication: HYPERTENSION
     Route: 048
  44. AMITRIPTYLLINE [Concomitant]
     Route: 048
  45. HEART PILL [Concomitant]
     Indication: CARDIAC DISORDER
  46. 28 DIFFERENT MEDICATIONS [Concomitant]
  47. TUMS [Concomitant]
  48. PEPCID [Concomitant]
  49. TAGAMET [Concomitant]

REACTIONS (42)
  - Hip fracture [Unknown]
  - Spinal fracture [Unknown]
  - Coma [Unknown]
  - Pneumonia [Unknown]
  - Asthma [Unknown]
  - Chronic obstructive pulmonary disease [Unknown]
  - Ulcer haemorrhage [Unknown]
  - Cardiac neoplasm unspecified [Unknown]
  - Haematemesis [Unknown]
  - Hypertension [Unknown]
  - Respiratory disorder [Unknown]
  - Cardiac failure congestive [Unknown]
  - Gait disturbance [Unknown]
  - Abasia [Unknown]
  - Back disorder [Unknown]
  - Cardiac disorder [Unknown]
  - Pain [Unknown]
  - Musculoskeletal chest pain [Unknown]
  - Gastric disorder [Not Recovered/Not Resolved]
  - Migraine [Unknown]
  - Gastrooesophageal reflux disease [Unknown]
  - Dyspepsia [Unknown]
  - Wheezing [Unknown]
  - Lung disorder [Unknown]
  - Pain in extremity [Unknown]
  - Back pain [Unknown]
  - Exostosis [Unknown]
  - Constipation [Unknown]
  - Headache [Unknown]
  - Insomnia [Unknown]
  - Malaise [Unknown]
  - Diarrhoea [Unknown]
  - Vomiting [Unknown]
  - Oedema peripheral [Unknown]
  - Abdominal pain upper [Unknown]
  - Gastrointestinal disorder [Unknown]
  - Dyspepsia [Unknown]
  - Circumstance or information capable of leading to medication error [Unknown]
  - Off label use [Unknown]
  - Off label use [Unknown]
  - Drug ineffective [Unknown]
  - Drug dose omission [Unknown]
